FAERS Safety Report 8150235-X (Version None)
Quarter: 2012Q1

REPORT INFORMATION
  Report Type: 
  Country: None (occurrence: None)
  Receive Date: 20120220
  Receipt Date: 20120215
  Transmission Date: 20120608
  Serious: No
  Sender: FDA-Public Use
  Company Number: US-PFIZER INC-2012041683

PATIENT
  Sex: Female
  Weight: 88.435 kg

DRUGS (2)
  1. NORVASC [Suspect]
     Indication: BLOOD PRESSURE ABNORMAL
     Dosage: 2.5 MG, DAILY
     Dates: start: 20100101, end: 20100101
  2. TOPROL-XL [Concomitant]
     Indication: CARDIAC FAILURE CHRONIC
     Dosage: 50 MG, 2X/DAY

REACTIONS (3)
  - PRURITUS [None]
  - HYPERSENSITIVITY [None]
  - DYSPNOEA [None]
